FAERS Safety Report 8851773 (Version 1)
Quarter: 2012Q4

REPORT INFORMATION
  Report Type: Spontaneous
  Country: US (occurrence: None)
  Receive Date: 20121018
  Receipt Date: 20121018
  Transmission Date: 20130627
  Serious: Yes (Other)
  Sender: FDA-Public Use
  Company Number: None

PATIENT
  Age: 57 Year
  Sex: Female
  Weight: 86.64 kg

DRUGS (6)
  1. PROAIR HFA [Suspect]
     Indication: SHORTNESS OF BREATH
     Dosage: 2 puffs every 4-6 hrs
     Route: 048
     Dates: start: 20121010, end: 20121011
  2. PROAIR HFA [Suspect]
     Indication: GENERALISED ILLNESS
     Dosage: 2 puffs every 4-6 hrs
     Route: 048
     Dates: start: 20121010, end: 20121011
  3. METFORMIN [Concomitant]
  4. DIOVAN GENERIC FORM [Concomitant]
  5. NORTRIPTYLYNE [Concomitant]
  6. OMEPRAZOLE [Concomitant]

REACTIONS (3)
  - Device malfunction [None]
  - Incorrect dose administered by device [None]
  - Asthma [None]
